FAERS Safety Report 9064450 (Version 1)
Quarter: 2013Q1

REPORT INFORMATION
  Report Type: Spontaneous
  Country: US (occurrence: US)
  Receive Date: 20130130
  Receipt Date: 20130130
  Transmission Date: 20140127
  Serious: Yes (Death, Other)
  Sender: FDA-Public Use
  Company Number: US-ACTELION-A-US2013-78229

PATIENT
  Age: 50 Year
  Sex: Female

DRUGS (1)
  1. TRACLEER [Suspect]
     Indication: PULMONARY ARTERIAL HYPERTENSION
     Dosage: UNK
     Route: 048
     Dates: end: 20121209

REACTIONS (4)
  - Pulmonary hypertension [Fatal]
  - Cor pulmonale [Fatal]
  - Right ventricular failure [Unknown]
  - Condition aggravated [Unknown]
